FAERS Safety Report 5744503-6 (Version None)
Quarter: 2008Q2

REPORT INFORMATION
  Report Type: 
  Country: None (occurrence: None)
  Receive Date: 20080520
  Receipt Date: 20080516
  Transmission Date: 20081010
  Serious: Yes (Disabling, Other)
  Sender: FDA-Public Use
  Company Number: BR-ASTRAZENECA-2003UW16198

PATIENT
  Age: 53 Year
  Sex: Male
  Weight: 109 kg

DRUGS (3)
  1. NAROPIN [Suspect]
     Indication: RENAL CANCER
     Dosage: PERIDURAL
     Route: 008
     Dates: start: 20010525
  2. FENTANYL [Concomitant]
     Dates: start: 20010525
  3. MORPHINE [Concomitant]

REACTIONS (3)
  - BACK PAIN [None]
  - ELECTROMYOGRAM ABNORMAL [None]
  - PARAESTHESIA [None]
